FAERS Safety Report 4295747-4 (Version None)
Quarter: 2004Q1

REPORT INFORMATION
  Report Type: 
  Country: None (occurrence: None)
  Receive Date: 20040216
  Receipt Date: 20031024
  Transmission Date: 20041129
  Serious: No
  Sender: FDA-Public Use
  Company Number: US-GLAXOSMITHKLINE-A0431553A

PATIENT
  Age: 22 Year
  Sex: Female

DRUGS (5)
  1. LAMICTAL [Suspect]
     Indication: BIPOLAR DISORDER
     Dosage: 100MG PER DAY
     Route: 048
  2. LEXAPRO [Suspect]
     Route: 065
  3. DEPAKOTE ER [Concomitant]
     Dosage: 500MG PER DAY
  4. LITHOBID [Concomitant]
     Dosage: 900MG PER DAY
     Route: 065
  5. REOPRO [Concomitant]
     Route: 065
     Dates: start: 20030701, end: 20031001

REACTIONS (1)
  - NYSTAGMUS [None]
